FAERS Safety Report 12056644 (Version 1)
Quarter: 2016Q1

REPORT INFORMATION
  Report Type: Report from Study
  Country: BR (occurrence: BR)
  Receive Date: 20160209
  Receipt Date: 20160209
  Transmission Date: 20160526
  Serious: Yes (Hospitalization, Other)
  Sender: FDA-Public Use
  Company Number: BR-ABBVIE-15K-020-1449262-00

PATIENT
  Age: 52 Year
  Sex: Female
  Weight: 56 kg

DRUGS (1)
  1. HUMIRA [Suspect]
     Active Substance: ADALIMUMAB
     Indication: PSORIATIC ARTHROPATHY
     Route: 058
     Dates: start: 201311, end: 201507

REACTIONS (10)
  - Respiratory failure [Unknown]
  - Night sweats [Unknown]
  - Pneumonia [Not Recovered/Not Resolved]
  - Cardiac failure congestive [Unknown]
  - Tuberculosis [Unknown]
  - Asthma [Unknown]
  - Haemoptysis [Unknown]
  - Organising pneumonia [Not Recovered/Not Resolved]
  - Pain [Unknown]
  - Diabetes mellitus [Not Recovered/Not Resolved]

NARRATIVE: CASE EVENT DATE: 201502
